FAERS Safety Report 20819740 (Version 1)
Quarter: 2022Q2

REPORT INFORMATION
  Report Type: Spontaneous
  Country: US (occurrence: US)
  Receive Date: 20220512
  Receipt Date: 20220512
  Transmission Date: 20220721
  Serious: No
  Sender: FDA-Public Use
  Company Number: US-PFIZER INC-202101198768

PATIENT

DRUGS (1)
  1. DEPO-TESTOSTERONE [Suspect]
     Active Substance: TESTOSTERONE CYPIONATE
     Dosage: 200 MG 10 ML/VIAL

REACTIONS (3)
  - Product physical consistency issue [Unknown]
  - Poor quality product administered [Unknown]
  - Drug ineffective [Unknown]
